FAERS Safety Report 5316374-3 (Version None)
Quarter: 2007Q2

REPORT INFORMATION
  Report Type: 
  Country: None (occurrence: None)
  Receive Date: 20070430
  Receipt Date: 20070418
  Transmission Date: 20071010
  Serious: Yes (Death, Life-Threatening, Hospitalization, Disabling)
  Sender: FDA-Public Use
  Company Number: THYM-11316

PATIENT
  Age: 48 Year
  Sex: Male
  Weight: 97.0698 kg

DRUGS (18)
  1. THYMOGLOBULIN [Suspect]
     Indication: COMPLICATIONS OF TRANSPLANTED KIDNEY
     Dosage: 125 MG QD IV
     Route: 042
     Dates: start: 20070124, end: 20070126
  2. THYMOGLOBULIN [Suspect]
     Indication: RENAL TRANSPLANT
     Dosage: 125 MG QD IV
     Route: 042
     Dates: start: 20070124, end: 20070126
  3. THYMOGLOBULIN [Suspect]
     Indication: COMPLICATIONS OF TRANSPLANTED KIDNEY
     Dosage: 75 MG QD IV
     Route: 042
     Dates: start: 20070129, end: 20070201
  4. THYMOGLOBULIN [Suspect]
     Indication: RENAL TRANSPLANT
     Dosage: 75 MG QD IV
     Route: 042
     Dates: start: 20070129, end: 20070201
  5. MYFORTIC [Concomitant]
  6. PREDNISONE TAB [Concomitant]
  7. VALCYTE [Concomitant]
  8. CLONIDINE [Concomitant]
  9. FLUCONAZOLE [Concomitant]
  10. SEPTRA [Concomitant]
  11. ASPIRIN [Concomitant]
  12. LASIX [Concomitant]
  13. NITROGLYCERIN [Concomitant]
  14. ISOSORBIDE MONONITRATE [Concomitant]
  15. PAXIL [Concomitant]
  16. COREG [Concomitant]
  17. LANTUS [Concomitant]
  18. 70/30 NPH/REGULAR INSULIN [Concomitant]

REACTIONS (12)
  - CARDIO-RESPIRATORY ARREST [None]
  - COMPLICATIONS OF TRANSPLANTED KIDNEY [None]
  - ELECTROMECHANICAL DISSOCIATION [None]
  - GUILLAIN-BARRE SYNDROME [None]
  - HAEMODIALYSIS [None]
  - HYPOTENSION [None]
  - KIDNEY TRANSPLANT REJECTION [None]
  - MYOCARDIAL INFARCTION [None]
  - PULMONARY EMBOLISM [None]
  - SEPSIS [None]
  - VENTRICULAR TACHYCARDIA [None]
  - WHITE BLOOD CELL COUNT DECREASED [None]
